FAERS Safety Report 13834972 (Version 4)
Quarter: 2017Q3

REPORT INFORMATION
  Report Type: Spontaneous
  Country: IT (occurrence: IT)
  Receive Date: 20170804
  Receipt Date: 20170811
  Transmission Date: 20171127
  Serious: Yes (Other)
  Sender: FDA-Public Use
  Company Number: IT-BRACCO-2017IT03478

PATIENT
  Age: 79 Year
  Sex: Male

DRUGS (9)
  1. MULTIHANCE [Suspect]
     Active Substance: GADOBENATE DIMEGLUMINE
     Indication: ANGIOGRAM
     Dosage: 14 ML, SINGLE
     Route: 042
     Dates: start: 20170725, end: 20170725
  2. PLAVIX [Concomitant]
     Active Substance: CLOPIDOGREL BISULFATE
  3. TOTALIP [Concomitant]
     Active Substance: ATORVASTATIN
  4. EUTIROX [Concomitant]
     Active Substance: LEVOTHYROXINE SODIUM
  5. KRUPLUS [Concomitant]
  6. CARDIOASPIRIN [Concomitant]
     Active Substance: ASPIRIN
  7. NORVASC [Concomitant]
     Active Substance: AMLODIPINE BESYLATE
  8. FINASTERIDE. [Concomitant]
     Active Substance: FINASTERIDE
  9. PENTACOL [Concomitant]
     Active Substance: MESALAMINE

REACTIONS (3)
  - Dyspnoea [Recovered/Resolved]
  - Contrast media reaction [None]
  - Epiglottic oedema [Recovered/Resolved]

NARRATIVE: CASE EVENT DATE: 20170725
